FAERS Safety Report 8729395 (Version 2)
Quarter: 2012Q4

REPORT INFORMATION
  Report Type: 
  Country: DE (occurrence: DE)
  Receive Date: 20120817
  Receipt Date: 20121016
  Transmission Date: 20130627
  Serious: Yes (Death, Hospitalization, Other)
  Sender: FDA-Public Use
  Company Number: DE-JNJFOC-20120709224

PATIENT
  Sex: Male
  Weight: 110 kg

DRUGS (7)
  1. ZYTIGA [Suspect]
     Indication: PROSTATE CANCER
     Route: 048
     Dates: start: 20120119, end: 20120712
  2. DUROGESIC [Suspect]
     Indication: PRODUCT USED FOR UNKNOWN INDICATION
     Route: 062
  3. MOVICOL [Concomitant]
     Route: 065
  4. MAGNESIUM [Concomitant]
     Route: 065
  5. ONDANSETRON [Concomitant]
     Route: 065
  6. XGEVA [Concomitant]
     Route: 065
  7. PREDNISOLONE [Concomitant]
     Route: 065
     Dates: start: 201201, end: 20120712

REACTIONS (5)
  - Prostate cancer [Fatal]
  - Liver function test abnormal [Not Recovered/Not Resolved]
  - Prostatic specific antigen increased [Unknown]
  - Pain [Unknown]
  - Night sweats [Unknown]
